FAERS Safety Report 5692513-X (Version None)
Quarter: 2008Q2

REPORT INFORMATION
  Report Type: 
  Country: None (occurrence: None)
  Receive Date: 20080402
  Receipt Date: 20080327
  Transmission Date: 20081010
  Serious: Yes (Hospitalization)
  Sender: FDA-Public Use
  Company Number: US-ABBOTT-08P-163-0444357-00

PATIENT
  Sex: Female
  Weight: 86.26 kg

DRUGS (9)
  1. NIASPAN [Suspect]
     Indication: BLOOD CHOLESTEROL INCREASED
     Dosage: WHITE
     Route: 048
     Dates: start: 20040101, end: 20071201
  2. NIASPAN [Suspect]
     Dosage: ORANGE
     Route: 048
     Dates: start: 20071201, end: 20080323
  3. NIASPAN [Suspect]
     Dosage: ORANGE
     Route: 048
     Dates: start: 20080325, end: 20080326
  4. WARFARIN SODIUM [Concomitant]
     Indication: THROMBOSIS
     Route: 048
     Dates: start: 20070301
  5. WARFARIN SODIUM [Concomitant]
     Indication: CARDIAC DISORDER
  6. BLOOD PRESSURE MEDICATION [Concomitant]
     Indication: HYPERTENSION
     Route: 048
  7. DIABETIC MEDICATION (NO INSULIN) [Concomitant]
     Indication: TYPE 2 DIABETES MELLITUS
     Route: 048
  8. ACID REFLUX MEDICATION [Concomitant]
     Indication: GASTROOESOPHAGEAL REFLUX DISEASE
     Route: 048
  9. UNSPECIFIED MEDICAYIONS [Concomitant]
     Indication: DRUG USE FOR UNKNOWN INDICATION

REACTIONS (8)
  - BURNING SENSATION [None]
  - DIZZINESS [None]
  - FLUSHING [None]
  - NAUSEA [None]
  - PERIPHERAL EMBOLISM [None]
  - PRURITUS [None]
  - PULMONARY EMBOLISM [None]
  - RASH GENERALISED [None]
